FAERS Safety Report 6574351-9 (Version None)
Quarter: 2010Q1

REPORT INFORMATION
  Report Type: 
  Country: None (occurrence: None)
  Receive Date: 20100201
  Receipt Date: 20100118
  Transmission Date: 20100710
  Serious: Yes (Hospitalization)
  Sender: FDA-Public Use
  Company Number: B0629313A

PATIENT
  Age: 80 Year
  Sex: Female

DRUGS (12)
  1. PAROXETINE HYDROCHLORIDE [Suspect]
     Dosage: 20 MG/PER DAY
  2. PREDNISONE [Suspect]
     Dosage: 25 MG/PER DAY
  3. BUMETANIDE [Concomitant]
  4. METFORMIN HYDROCHLORIDE [Concomitant]
  5. SIMVASTATIN [Concomitant]
  6. SINTROM [Concomitant]
  7. ALENDRONATE SODIUM [Concomitant]
  8. PANTOPRAZOLE [Concomitant]
  9. ACETAMINOPHEN W/ CODEINE [Concomitant]
  10. OXYCODONE [Concomitant]
  11. TEMAZEPAM [Concomitant]
  12. CALCIUM CARBONATE [Concomitant]

REACTIONS (12)
  - DIPLOPIA [None]
  - DIZZINESS [None]
  - EXOPHTHALMOS [None]
  - EYE SWELLING [None]
  - FACE INJURY [None]
  - FACIAL BONES FRACTURE [None]
  - FALL [None]
  - MYDRIASIS [None]
  - OCULAR RETROBULBAR HAEMORRHAGE [None]
  - PALPITATIONS [None]
  - PERIORBITAL HAEMATOMA [None]
  - VISUAL ACUITY REDUCED [None]
